FAERS Safety Report 16368693 (Version 2)
Quarter: 2019Q2

REPORT INFORMATION
  Report Type: Spontaneous
  Country: AT (occurrence: AT)
  Receive Date: 20190529
  Receipt Date: 20190604
  Transmission Date: 20190711
  Serious: Yes (Death, Hospitalization)
  Sender: FDA-Public Use
  Company Number: AT-INCYTE CORPORATION-2019IN005087

PATIENT

DRUGS (2)
  1. JAKAVI [Suspect]
     Active Substance: RUXOLITINIB
     Indication: PRIMARY MYELOFIBROSIS
     Dosage: 10 MG, BID
     Route: 048
     Dates: start: 2016
  2. JAKAVI [Suspect]
     Active Substance: RUXOLITINIB
     Indication: MYELOFIBROSIS

REACTIONS (11)
  - Primary myelofibrosis [Fatal]
  - Oedema peripheral [Unknown]
  - Pneumonia [Unknown]
  - Myelofibrosis [Fatal]
  - Pyrexia [Unknown]
  - Urinary tract infection [Unknown]
  - Bursitis [Unknown]
  - Cellulitis [Unknown]
  - Haemorrhage [Unknown]
  - General physical health deterioration [Unknown]
  - Tendonitis [Unknown]

NARRATIVE: CASE EVENT DATE: 20190316
